FAERS Safety Report 6421777-X (Version None)
Quarter: 2009Q4

REPORT INFORMATION
  Report Type: 
  Country: None (occurrence: None)
  Receive Date: 20091030
  Receipt Date: 20091026
  Transmission Date: 20100525
  Serious: Yes (Death)
  Sender: FDA-Public Use
  Company Number: A0810017A

PATIENT
  Sex: Female

DRUGS (2)
  1. TYKERB [Suspect]
     Dosage: 1250MG PER DAY
     Route: 048
     Dates: start: 20081001
  2. XELODA [Suspect]
     Dosage: 2000MGM2 CYCLIC
     Route: 048
     Dates: start: 20081001

REACTIONS (5)
  - DIARRHOEA [None]
  - LYMPHANGITIS [None]
  - PALMAR-PLANTAR ERYTHRODYSAESTHESIA SYNDROME [None]
  - PLEURAL EFFUSION [None]
  - RESPIRATORY FAILURE [None]
